FAERS Safety Report 9807134 (Version 3)
Quarter: 2014Q2

REPORT INFORMATION
  Report Type: Report from Study
  Country: US (occurrence: US)
  Receive Date: 20140110
  Receipt Date: 20140403
  Transmission Date: 20141212
  Serious: Yes (Hospitalization)
  Sender: FDA-Public Use
  Company Number: US-ACTELION-A-NJ2013-91804

PATIENT
  Age: 45 Year
  Sex: Female

DRUGS (1)
  1. VELETRI [Suspect]
     Indication: PULMONARY ARTERIAL HYPERTENSION
     Dosage: 18 NG/KG, PER MIN
     Route: 042
     Dates: start: 20130916

REACTIONS (14)
  - Migraine [Unknown]
  - Diarrhoea [Unknown]
  - Nausea [Unknown]
  - Vomiting [Unknown]
  - Catheter site pain [Unknown]
  - Skin reaction [Unknown]
  - Onychalgia [Unknown]
  - Arthropod bite [Unknown]
  - Chest pain [Unknown]
  - Road traffic accident [Unknown]
  - Fall [Unknown]
  - Rash [Unknown]
  - Ingrowing nail [Unknown]
  - Onychalgia [Unknown]
